FAERS Safety Report 7681411-8 (Version None)
Quarter: 2011Q3

REPORT INFORMATION
  Report Type: 
  Country: None (occurrence: None)
  Receive Date: 20110809
  Receipt Date: 20110801
  Transmission Date: 20111222
  Serious: Yes (Death, Hospitalization)
  Sender: FDA-Public Use
  Company Number: WAES 1004USA00555

PATIENT
  Age: 67 Year
  Sex: Female

DRUGS (13)
  1. LOXONIN [Concomitant]
  2. MAGMITT [Concomitant]
  3. MORPHINE [Concomitant]
  4. BIO THREE [Concomitant]
  5. DECADRON [Concomitant]
  6. CAP VORINOSTAT [Suspect]
     Indication: PLEURAL MESOTHELIOMA MALIGNANT
     Dosage: 300 MG/BID
     Route: 048
     Dates: start: 20100219, end: 20100302
  7. LANSOPRAZOLE [Concomitant]
  8. ADALAT [Concomitant]
  9. TPN ELECTROLYTES IN PLASTIC CONTAINER [Concomitant]
  10. PURSENNID [Concomitant]
  11. FENTANYL [Concomitant]
  12. GASCON [Concomitant]
  13. MUCOSTA [Concomitant]

REACTIONS (5)
  - DEPRESSION [None]
  - NAUSEA [None]
  - PLATELET COUNT DECREASED [None]
  - HAEMOGLOBIN DECREASED [None]
  - PNEUMONIA [None]
